FAERS Safety Report 24181625 (Version 8)
Quarter: 2024Q4

REPORT INFORMATION
  Report Type: Spontaneous
  Country: JP (occurrence: JP)
  Receive Date: 20240807
  Receipt Date: 20241224
  Transmission Date: 20250114
  Serious: Yes (Hospitalization)
  Sender: ABBVIE
  Company Number: JP-ABBVIE-5866513

PATIENT
  Age: 14 Year
  Sex: Female
  Weight: 50 kg

DRUGS (5)
  1. HUMIRA [Suspect]
     Active Substance: ADALIMUMAB
     Indication: Juvenile idiopathic arthritis
     Dosage: FORM STRENGTH: 40 MG
     Route: 058
     Dates: start: 20230307, end: 202407
  2. IBUPROFEN [Concomitant]
     Active Substance: IBUPROFEN
     Indication: Juvenile idiopathic arthritis
     Dosage: 200 MILLIGRAM
     Route: 048
     Dates: start: 20220307, end: 202407
  3. FAMOTIDINE [Concomitant]
     Active Substance: FAMOTIDINE
     Indication: Gastritis prophylaxis
     Dosage: 10 MILLIGRAM
     Route: 048
     Dates: start: 20220307, end: 202407
  4. METHOTREXATE [Suspect]
     Active Substance: METHOTREXATE
     Indication: Juvenile idiopathic arthritis
     Dosage: 4 MILLIGRAM
     Route: 048
     Dates: start: 20220620, end: 202407
  5. FOLIC ACID [Concomitant]
     Active Substance: FOLIC ACID
     Indication: Juvenile idiopathic arthritis
     Dosage: 5 MILLIGRAM
     Route: 048
     Dates: start: 20220620, end: 202407

REACTIONS (9)
  - Encephalitis [Recovered/Resolved]
  - Cytotoxic lesions of corpus callosum [Recovered/Resolved]
  - Orthostatic intolerance [Recovering/Resolving]
  - Iron deficiency anaemia [Recovering/Resolving]
  - Immunodeficiency [Not Recovered/Not Resolved]
  - Encephalopathy [Recovered/Resolved]
  - Streptococcal infection [Recovered/Resolved]
  - Beta haemolytic streptococcal infection [Recovering/Resolving]
  - Vomiting [Unknown]

NARRATIVE: CASE EVENT DATE: 20230801
